FAERS Safety Report 9272168 (Version 4)
Quarter: 2014Q1

REPORT INFORMATION
  Report Type: Spontaneous
  Country: AU (occurrence: AU)
  Receive Date: 20130506
  Receipt Date: 20140212
  Transmission Date: 20141002
  Serious: Yes (Other)
  Sender: FDA-Public Use
  Company Number: AU-PFIZER INC-2013136253

PATIENT
  Age: 66 Year
  Sex: Male

DRUGS (5)
  1. RAMIPRIL [Suspect]
     Dosage: UNK
     Route: 048
  2. ROSUVASTATIN CALCIUM [Suspect]
     Dosage: UNK
     Route: 048
  3. TOPIRAMATE [Suspect]
     Dosage: UNK
     Route: 048
  4. PHENYTOIN [Concomitant]
     Dosage: UNK
  5. DIAZEPAM [Concomitant]
     Dosage: UNK

REACTIONS (7)
  - Pancreatic duct dilatation [Unknown]
  - Lipase increased [Recovering/Resolving]
  - Hepatomegaly [Unknown]
  - Renal cyst [Unknown]
  - Pancreatic enlargement [Unknown]
  - Hypotension [Recovering/Resolving]
  - White blood cell count increased [Recovering/Resolving]
